FAERS Safety Report 21154995 (Version 1)
Quarter: 2022Q3

REPORT INFORMATION
  Report Type: Spontaneous
  Country: US (occurrence: None)
  Receive Date: 20220731
  Receipt Date: 20220731
  Transmission Date: 20221026
  Serious: Yes (Other)
  Sender: FDA-Public Use
  Company Number: None

PATIENT
  Age: 51 Year
  Sex: Female
  Weight: 58.05 kg

DRUGS (3)
  1. PAXLOVID [Suspect]
     Active Substance: NIRMATRELVIR\RITONAVIR
     Indication: SARS-CoV-2 test positive
     Dosage: OTHER QUANTITY : 3 TABLET(S);?FREQUENCY : TWICE A DAY;?
     Route: 048
     Dates: start: 20220729, end: 20220731
  2. PAXLOVID [Suspect]
     Active Substance: NIRMATRELVIR\RITONAVIR
     Indication: Neoplasm malignant
  3. TAGRISSO [Concomitant]
     Active Substance: OSIMERTINIB

REACTIONS (9)
  - Hypotension [None]
  - Heart rate increased [None]
  - Headache [None]
  - Vision blurred [None]
  - Dizziness [None]
  - Nervousness [None]
  - Photophobia [None]
  - Urinary tract infection [None]
  - Abdominal pain [None]

NARRATIVE: CASE EVENT DATE: 20220731
